FAERS Safety Report 6004693-7 (Version None)
Quarter: 2008Q4

REPORT INFORMATION
  Report Type: 
  Country: None (occurrence: None)
  Receive Date: 20081216
  Receipt Date: 20081204
  Transmission Date: 20090506
  Serious: Yes (Other)
  Sender: FDA-Public Use
  Company Number: CA-SANOFI-SYNTHELABO-A01200815794

PATIENT
  Sex: Male
  Weight: 59.3 kg

DRUGS (5)
  1. LEUCOVORIN CALCIUM [Concomitant]
     Dosage: 330 MG
     Route: 042
     Dates: start: 20081202
  2. DEXAMETHASONE [Concomitant]
     Dosage: 10 MG
     Route: 042
     Dates: start: 20081202
  3. ONDANSETRON [Concomitant]
     Dosage: 8 MG
     Route: 042
     Dates: start: 20081202
  4. ELOXATIN [Suspect]
     Indication: COLON CANCER
     Dosage: 140 MG
     Route: 042
     Dates: start: 20080812
  5. FLUOROURACIL [Concomitant]
     Dosage: 650 MG THEN 3950 MG FOR 46 HOURS
     Route: 042
     Dates: start: 20081202

REACTIONS (1)
  - LARYNGOSPASM [None]
